FAERS Safety Report 7523645-9 (Version None)
Quarter: 2011Q2

REPORT INFORMATION
  Report Type: 
  Country: None (occurrence: None)
  Receive Date: 20110603
  Receipt Date: 20110524
  Transmission Date: 20111010
  Serious: Yes (Hospitalization, Other)
  Sender: FDA-Public Use
  Company Number: US-ROCHE-756170

PATIENT
  Sex: Male
  Weight: 96.6 kg

DRUGS (2)
  1. IRON SUPPLEMENT [Concomitant]
  2. ACCUTANE [Suspect]
     Route: 065
     Dates: start: 19940401, end: 19940801

REACTIONS (8)
  - PELVIC ABSCESS [None]
  - INTESTINAL OBSTRUCTION [None]
  - CROHN'S DISEASE [None]
  - HAEMORRHOIDS [None]
  - BLOOD IRON DECREASED [None]
  - ANAEMIA [None]
  - INFLAMMATORY BOWEL DISEASE [None]
  - ANAL FISTULA [None]
